FAERS Safety Report 10896907 (Version 1)
Quarter: 2015Q1

REPORT INFORMATION
  Report Type: Spontaneous
  Country: US (occurrence: US)
  Receive Date: 20150309
  Receipt Date: 20150309
  Transmission Date: 20150721
  Serious: Yes (Death)
  Sender: FDA-Public Use
  Company Number: US-BANPHARM-20153712

PATIENT
  Age: 58 Year
  Sex: Male

DRUGS (6)
  1. QUININE [Suspect]
     Active Substance: QUININE
  2. DEXTROMETHORPHAN [Suspect]
     Active Substance: DEXTROMETHORPHAN
  3. DIPHENHYDRAMINE UNKNOWN PRODUCT [Suspect]
     Active Substance: DIPHENHYDRAMINE
  4. METHAMPHETAMINE [Suspect]
     Active Substance: METHAMPHETAMINE
  5. HEROIN [Suspect]
     Active Substance: DIACETYLMORPHINE
  6. ETHANOL (NON-BEVERAGE) [Suspect]
     Active Substance: ALCOHOL

REACTIONS (2)
  - Drug abuse [Fatal]
  - Exposure via ingestion [None]
